FAERS Safety Report 25590242 (Version 1)
Quarter: 2025Q3

REPORT INFORMATION
  Report Type: Spontaneous
  Country: US (occurrence: None)
  Receive Date: 20250721
  Receipt Date: 20250721
  Transmission Date: 20251021
  Serious: No
  Sender: FDA-CTU
  Company Number: None

PATIENT
  Age: 30 Year
  Sex: Female

DRUGS (1)
  1. HUMIRA [Suspect]
     Active Substance: ADALIMUMAB
     Indication: Psoriatic arthropathy
     Dates: start: 20250703, end: 20250717

REACTIONS (6)
  - Insomnia [None]
  - Nasopharyngitis [None]
  - Influenza [None]
  - Headache [None]
  - Nausea [None]
  - Injection site urticaria [None]

NARRATIVE: CASE EVENT DATE: 20250703
